FAERS Safety Report 5073950-3 (Version None)
Quarter: 2006Q3

REPORT INFORMATION
  Report Type: 
  Country: None (occurrence: None)
  Receive Date: 20060808
  Receipt Date: 20060526
  Transmission Date: 20061208
  Serious: No
  Sender: FDA-Public Use
  Company Number: US-AMGEN-KDL181183

PATIENT
  Sex: Female

DRUGS (5)
  1. PROCRIT [Suspect]
     Indication: ANAEMIA OF MALIGNANT DISEASE
     Route: 042
     Dates: start: 20060522
  2. ETOPOSIDE [Concomitant]
     Dates: start: 20060522
  3. CARBOPLATIN [Concomitant]
  4. LEUCOVORIN CALCIUM [Concomitant]
     Dates: start: 20060525
  5. AMARYL [Concomitant]

REACTIONS (2)
  - BLOOD PRESSURE DIASTOLIC DECREASED [None]
  - CONVULSION [None]
